FAERS Safety Report 24962139 (Version 1)
Quarter: 2025Q1

REPORT INFORMATION
  Report Type: Spontaneous
  Country: CN (occurrence: CN)
  Receive Date: 20250212
  Receipt Date: 20250212
  Transmission Date: 20250409
  Serious: Yes (Life-Threatening)
  Sender: ELI LILLY AND COMPANY
  Company Number: CN-MLMSERVICE-20250203-PI387972-00165-1

PATIENT
  Age: 52 Year
  Sex: Female

DRUGS (15)
  1. GEMCITABINE HYDROCHLORIDE [Suspect]
     Active Substance: GEMCITABINE HYDROCHLORIDE
     Indication: Extraskeletal osteosarcoma
     Route: 065
     Dates: start: 20240804
  2. GEMCITABINE HYDROCHLORIDE [Suspect]
     Active Substance: GEMCITABINE HYDROCHLORIDE
     Indication: Rectal cancer
  3. GEMCITABINE HYDROCHLORIDE [Suspect]
     Active Substance: GEMCITABINE HYDROCHLORIDE
     Indication: Metastases to liver
  4. GEMCITABINE HYDROCHLORIDE [Suspect]
     Active Substance: GEMCITABINE HYDROCHLORIDE
     Indication: Metastases to peritoneum
  5. GEMCITABINE HYDROCHLORIDE [Suspect]
     Active Substance: GEMCITABINE HYDROCHLORIDE
     Indication: Disease progression
  6. OXALIPLATIN [Suspect]
     Active Substance: OXALIPLATIN
     Indication: Extraskeletal osteosarcoma
     Route: 065
     Dates: start: 20240804
  7. OXALIPLATIN [Suspect]
     Active Substance: OXALIPLATIN
     Indication: Rectal cancer
  8. OXALIPLATIN [Suspect]
     Active Substance: OXALIPLATIN
     Indication: Metastases to liver
  9. OXALIPLATIN [Suspect]
     Active Substance: OXALIPLATIN
     Indication: Metastases to peritoneum
  10. OXALIPLATIN [Suspect]
     Active Substance: OXALIPLATIN
     Indication: Disease progression
  11. CATEQUENTINIB [Suspect]
     Active Substance: CATEQUENTINIB
     Indication: Extraskeletal osteosarcoma
     Route: 065
     Dates: start: 20240804
  12. CATEQUENTINIB [Suspect]
     Active Substance: CATEQUENTINIB
     Indication: Rectal cancer
  13. CATEQUENTINIB [Suspect]
     Active Substance: CATEQUENTINIB
     Indication: Metastases to liver
  14. CATEQUENTINIB [Suspect]
     Active Substance: CATEQUENTINIB
     Indication: Metastases to peritoneum
  15. CATEQUENTINIB [Suspect]
     Active Substance: CATEQUENTINIB
     Indication: Disease progression

REACTIONS (2)
  - Leukopenia [Unknown]
  - Thrombocytopenia [Unknown]

NARRATIVE: CASE EVENT DATE: 20240101
